FAERS Safety Report 12323112 (Version 4)
Quarter: 2017Q4

REPORT INFORMATION
  Report Type: Spontaneous
  Country: US (occurrence: US)
  Receive Date: 20160502
  Receipt Date: 20171120
  Transmission Date: 20180320
  Serious: Yes (Hospitalization)
  Sender: FDA-Public Use
  Company Number: US-JNJFOC-20160415704

PATIENT
  Age: 46 Year
  Sex: Male
  Weight: 114.31 kg

DRUGS (5)
  1. DULOXETINE HCL [Concomitant]
     Active Substance: DULOXETINE HYDROCHLORIDE
     Indication: ANXIETY
     Route: 065
     Dates: start: 2007
  2. INVOKANA [Suspect]
     Active Substance: CANAGLIFLOZIN
     Indication: DIABETES MELLITUS
     Route: 048
     Dates: start: 20140626, end: 20150219
  3. METFORMIN [Suspect]
     Active Substance: METFORMIN HYDROCHLORIDE
     Indication: PRODUCT USED FOR UNKNOWN INDICATION
     Route: 048
     Dates: start: 2007, end: 201502
  4. METFORMIN [Suspect]
     Active Substance: METFORMIN HYDROCHLORIDE
     Indication: PRODUCT USED FOR UNKNOWN INDICATION
     Route: 048
     Dates: end: 2016
  5. FENOFIBRATE. [Concomitant]
     Active Substance: FENOFIBRATE
     Indication: BLOOD TRIGLYCERIDES
     Route: 065
     Dates: start: 2002

REACTIONS (1)
  - Diabetic ketoacidosis [Recovered/Resolved]

NARRATIVE: CASE EVENT DATE: 20150219
